FAERS Safety Report 6813223-9 (Version None)
Quarter: 2010Q3

REPORT INFORMATION
  Report Type: 
  Country: None (occurrence: None)
  Receive Date: 20100701
  Receipt Date: 20100623
  Transmission Date: 20110219
  Serious: Yes (Hospitalization, Other)
  Sender: FDA-Public Use
  Company Number: US-PFIZER INC-2010079254

PATIENT
  Sex: Male
  Weight: 78.005 kg

DRUGS (2)
  1. GEODON [Suspect]
     Indication: DEPRESSION
     Dosage: 60 MG, 1X/DAY
     Route: 048
     Dates: start: 20100607, end: 20100611
  2. GEODON [Suspect]
     Indication: PSYCHOTIC DISORDER

REACTIONS (11)
  - DECREASED APPETITE [None]
  - DEHYDRATION [None]
  - DISORIENTATION [None]
  - DYSKINESIA [None]
  - EYE DISORDER [None]
  - MUSCLE SPASMS [None]
  - MUSCLE TIGHTNESS [None]
  - MUSCULOSKELETAL STIFFNESS [None]
  - PERSONALITY CHANGE [None]
  - TREMOR [None]
  - WEIGHT DECREASED [None]
